FAERS Safety Report 24168211 (Version 1)
Quarter: 2024Q3

REPORT INFORMATION
  Report Type: Spontaneous
  Country: US (occurrence: None)
  Receive Date: 20240802
  Receipt Date: 20240802
  Transmission Date: 20241017
  Serious: Yes (Other)
  Sender: Public
  Company Number: None

PATIENT
  Sex: Female

DRUGS (9)
  1. ENBREL [Suspect]
     Active Substance: BENZYL ALCOHOL\ETANERCEPT
     Indication: Rheumatoid arthritis
     Dosage: OTHER QUANTITY : 1 SYRINGE UNDER THE SKIN ;?FREQUENCY : WEEKLY;?
     Route: 058
     Dates: start: 20240710
  2. ALENDRONATE [Concomitant]
     Active Substance: ALENDRONATE SODIUM
  3. ATORVASTATIN [Concomitant]
  4. BENZONATATE [Concomitant]
     Active Substance: BENZONATATE
  5. BUMETANIDE [Concomitant]
     Active Substance: BUMETANIDE
  6. CLOPIDOGREL [Concomitant]
  7. CYANOCOBALAM [Concomitant]
  8. DEXAMETHASONE [Concomitant]
     Active Substance: DEXAMETHASONE
  9. ESCITALOPRAM [Concomitant]

REACTIONS (1)
  - Cerebrovascular accident [None]
